FAERS Safety Report 23510112 (Version 2)
Quarter: 2025Q1

REPORT INFORMATION
  Report Type: Spontaneous
  Country: US (occurrence: US)
  Receive Date: 20240211
  Receipt Date: 20250110
  Transmission Date: 20250409
  Serious: No
  Sender: SANOFI AVENTIS
  Company Number: US-SA-2024SA046799

PATIENT
  Age: 54 Year
  Sex: Female

DRUGS (1)
  1. DUPIXENT [Suspect]
     Active Substance: DUPILUMAB
     Indication: Eosinophilic oesophagitis
     Dosage: 300 MG, QW
     Route: 058
     Dates: start: 202309

REACTIONS (6)
  - Musculoskeletal stiffness [Not Recovered/Not Resolved]
  - Abdominal pain [Recovered/Resolved]
  - Pain [Recovered/Resolved]
  - Respiratory tract irritation [Unknown]
  - Chest discomfort [Unknown]
  - Cholelithiasis [Unknown]

NARRATIVE: CASE EVENT DATE: 20241226
